FAERS Safety Report 11671470 (Version 2)
Quarter: 2015Q4

REPORT INFORMATION
  Report Type: Report from Study
  Country: JP (occurrence: JP)
  Receive Date: 20151028
  Receipt Date: 20151030
  Transmission Date: 20160304
  Serious: Yes (Hospitalization, Other)
  Sender: FDA-Public Use
  Company Number: JP-SA-2015SA169249

PATIENT
  Age: 23 Year
  Sex: Male
  Weight: 66.9 kg

DRUGS (17)
  1. THYMOGLOBULINE [Suspect]
     Active Substance: LAPINE T-LYMPHOCYTE IMMUNE GLOBULIN
     Indication: BONE MARROW CONDITIONING REGIMEN
     Dosage: OVER 8 HOURS
     Route: 042
     Dates: start: 20131120, end: 20131121
  2. URSO [Concomitant]
     Active Substance: URSODIOL
     Indication: PROPHYLAXIS
     Dates: start: 20131120, end: 20140107
  3. BUSULFEX [Suspect]
     Active Substance: BUSULFAN
     Route: 065
     Dates: start: 20131123, end: 20131124
  4. ALKERAN [Suspect]
     Active Substance: MELPHALAN
     Route: 065
     Dates: start: 20131124, end: 20131125
  5. PRODIF [Concomitant]
     Active Substance: FOSFLUCONAZOLE
     Indication: ANTIFUNGAL PROPHYLAXIS
     Dates: start: 20131209, end: 20131223
  6. THYMOGLOBULINE [Suspect]
     Active Substance: LAPINE T-LYMPHOCYTE IMMUNE GLOBULIN
     Indication: BONE MARROW CONDITIONING REGIMEN
     Dosage: OVER 1 HOUR
     Route: 042
     Dates: start: 20131120, end: 20131120
  7. TAKEPRON [Concomitant]
     Active Substance: LANSOPRAZOLE
     Indication: PROPHYLAXIS AGAINST GASTROINTESTINAL ULCER
     Dates: start: 20131118, end: 20131204
  8. MYCOSYST [Concomitant]
     Active Substance: FLUCONAZOLE
     Indication: ANTIFUNGAL PROPHYLAXIS
     Dates: start: 20131224, end: 20140220
  9. GRAN [Concomitant]
     Active Substance: FILGRASTIM
     Indication: NEUTROPENIA
     Dates: start: 20131203, end: 20131225
  10. PREDONINE [Suspect]
     Active Substance: PREDNISOLONE\PREDNISOLONE ACETATE\PREDNISOLONE SODIUM SUCCINATE
     Route: 065
     Dates: start: 20131202
  11. ZOVIRAX [Concomitant]
     Active Substance: ACYCLOVIR
     Indication: PROPHYLAXIS
     Dates: start: 20131118, end: 20131129
  12. FOSCAVIR [Concomitant]
     Active Substance: FOSCARNET SODIUM
     Indication: HUMAN HERPESVIRUS 6 INFECTION
     Dates: start: 20131207, end: 20131214
  13. ALEVIATIN [Concomitant]
     Active Substance: PHENYTOIN SODIUM
     Indication: PROPHYLAXIS
     Dates: start: 20131121, end: 20131125
  14. CRAVIT [Concomitant]
     Active Substance: LEVOFLOXACIN
     Indication: INFECTION PROPHYLAXIS
     Dates: start: 20131118, end: 20131129
  15. MYCOSYST [Concomitant]
     Active Substance: FLUCONAZOLE
     Indication: ANTIFUNGAL PROPHYLAXIS
     Dates: start: 20131118, end: 20131123
  16. PROGRAF [Suspect]
     Active Substance: TACROLIMUS\TACROLIMUS ANHYDROUS
     Indication: PROPHYLAXIS AGAINST GRAFT VERSUS HOST DISEASE
     Route: 065
     Dates: start: 20131126
  17. SOL-MELCORT [Concomitant]
     Active Substance: METHYLPREDNISOLONE SODIUM SUCCINATE
     Indication: PROPHYLAXIS
     Dates: start: 20131120, end: 20131121

REACTIONS (4)
  - Thrombotic microangiopathy [Recovered/Resolved]
  - Cystitis haemorrhagic [Recovering/Resolving]
  - Febrile neutropenia [Recovered/Resolved]
  - Cytomegalovirus viraemia [Recovered/Resolved]

NARRATIVE: CASE EVENT DATE: 20131130
